FAERS Safety Report 5050754-9 (Version None)
Quarter: 2006Q3

REPORT INFORMATION
  Report Type: 
  Country: None (occurrence: None)
  Receive Date: 20060713
  Receipt Date: 20060707
  Transmission Date: 20061208
  Serious: Yes (Hospitalization)
  Sender: FDA-Public Use
  Company Number: IT-BOEHRINGER INGELHEIM PHARMACEUTICALS, INC.-2006-IT-00177IT

PATIENT
  Sex: Female

DRUGS (3)
  1. VIRAMUNE [Suspect]
     Indication: ACUTE HIV INFECTION
     Route: 048
     Dates: start: 20060513, end: 20060607
  2. IRON SULFATETHIAMIN COMPOUND TAB [Concomitant]
     Route: 048
     Dates: start: 20060513, end: 20060607
  3. COMBIVIR [Concomitant]
     Route: 048
     Dates: start: 20060513, end: 20060607

REACTIONS (3)
  - PETECHIAE [None]
  - RASH VESICULAR [None]
  - STOMATITIS [None]
